APPROVED DRUG PRODUCT: TRETINOIN
Active Ingredient: TRETINOIN
Strength: 0.05%
Dosage Form/Route: SOLUTION;TOPICAL
Application: A075260 | Product #001
Applicant: WOCKHARDT EU OPERATIONS (SWISS) AG
Approved: Jan 25, 1999 | RLD: No | RS: No | Type: DISCN